FAERS Safety Report 8186865-9 (Version None)
Quarter: 2012Q1

REPORT INFORMATION
  Report Type: 
  Country: None (occurrence: None)
  Receive Date: 20120306
  Receipt Date: 20120222
  Transmission Date: 20120608
  Serious: Yes (Hospitalization)
  Sender: FDA-Public Use
  Company Number: FR-CELGENEUS-056-50794-11091408

PATIENT
  Sex: Female

DRUGS (1)
  1. VIDAZA [Suspect]
     Dosage: 2 DOSAGE FORMS
     Route: 058
     Dates: start: 20100915, end: 20100921

REACTIONS (1)
  - INJECTION SITE ABSCESS [None]
